FAERS Safety Report 9379381 (Version 1)
Quarter: 2013Q2

REPORT INFORMATION
  Report Type: Spontaneous
  Country: GB (occurrence: None)
  Receive Date: 20130401
  Receipt Date: 20130401
  Transmission Date: 20140414
  Serious: Yes (Death)
  Sender: FDA-Public Use
  Company Number: 2013MPI00083

PATIENT
  Age: 81 Year
  Sex: 0

DRUGS (1)
  1. BRENTUXIMAB VEDOLIN [Suspect]
     Indication: ANAPLASTIC LARGE-CELL LYMPHOMA

REACTIONS (1)
  - Sepsis [None]
